FAERS Safety Report 13302249 (Version 1)
Quarter: 2017Q1

REPORT INFORMATION
  Report Type: Spontaneous
  Country: TR (occurrence: TR)
  Receive Date: 20170307
  Receipt Date: 20170307
  Transmission Date: 20170428
  Serious: Yes (Hospitalization, Other)
  Sender: FDA-Public Use
  Company Number: TR-MYLANLABS-2017M1013834

PATIENT

DRUGS (2)
  1. LANSOPRAZOLE. [Interacting]
     Active Substance: LANSOPRAZOLE
     Indication: PRODUCT USED FOR UNKNOWN INDICATION
     Route: 065
  2. METHOTREXATE. [Suspect]
     Active Substance: METHOTREXATE
     Indication: PSORIASIS
     Dosage: 15 MG/WEEK FOR EIGHT YEARS
     Route: 065

REACTIONS (6)
  - Toxicity to various agents [Recovering/Resolving]
  - Pancytopenia [Recovered/Resolved]
  - Drug interaction [Recovering/Resolving]
  - Mucosal inflammation [Recovering/Resolving]
  - Hepatic enzyme increased [Unknown]
  - Skin ulcer [Recovering/Resolving]
